FAERS Safety Report 23196748 (Version 1)
Quarter: 2023Q4

REPORT INFORMATION
  Report Type: Report from Study
  Country: US (occurrence: None)
  Receive Date: 20231117
  Receipt Date: 20231117
  Transmission Date: 20240109
  Serious: Yes (Other)
  Sender: FDA-Public Use
  Company Number: 2023A256375

PATIENT
  Sex: Female

DRUGS (2)
  1. TAGRISSO [Suspect]
     Active Substance: OSIMERTINIB
     Indication: Lung carcinoma cell type unspecified stage 0
     Route: 048
     Dates: start: 202310
  2. METOPROLOL [Suspect]
     Active Substance: METOPROLOL
     Route: 048

REACTIONS (2)
  - Blood pressure increased [Unknown]
  - Hypoaesthesia [Unknown]
